FAERS Safety Report 20915343 (Version 1)
Quarter: 2022Q2

REPORT INFORMATION
  Report Type: Spontaneous
  Country: US (occurrence: US)
  Receive Date: 20220604
  Receipt Date: 20220604
  Transmission Date: 20220721
  Serious: No
  Sender: FDA-Public Use
  Company Number: US-SA-SAC20220530000625

PATIENT
  Age: 65 Year
  Sex: Female

DRUGS (17)
  1. DUPIXENT [Suspect]
     Active Substance: DUPILUMAB
     Indication: Asthma
     Dosage: 300 MG, QOW
     Route: 058
     Dates: start: 20220220
  2. ALBUTEROL [Concomitant]
     Active Substance: ALBUTEROL
  3. AZATHIOPRINE [Concomitant]
     Active Substance: AZATHIOPRINE
  4. AZELASTINE [Concomitant]
     Active Substance: AZELASTINE
     Dosage: 15MG
  5. BUSPIRONE [Concomitant]
     Active Substance: BUSPIRONE HYDROCHLORIDE
     Dosage: 15MG
  6. CODEINE [Concomitant]
     Active Substance: CODEINE
     Dosage: 15MG
  7. COMBIVENT [Concomitant]
     Active Substance: ALBUTEROL SULFATE\IPRATROPIUM BROMIDE
     Dosage: 15MG
  8. DALIRESP [Concomitant]
     Active Substance: ROFLUMILAST
     Dosage: 250MG
  9. DEPAKOTE [Concomitant]
     Active Substance: DIVALPROEX SODIUM
     Dosage: 250MG
  10. DIGOXIN [Concomitant]
     Active Substance: DIGOXIN
  11. DULOXETINE [Concomitant]
     Active Substance: DULOXETINE
     Dosage: 300MG
  12. PREGABALIN [Concomitant]
     Active Substance: PREGABALIN
     Dosage: 225MGS
  13. SUCRALFATE [Concomitant]
     Active Substance: SUCRALFATE
     Dosage: 300MG
  14. SYMBICORT [Concomitant]
     Active Substance: BUDESONIDE\FORMOTEROL FUMARATE DIHYDRATE
     Dosage: 225MGS
  15. TRAMADOL HCL [Concomitant]
     Active Substance: TRAMADOL HYDROCHLORIDE
     Dosage: 50MG
  16. TRAZODONE [Concomitant]
     Active Substance: TRAZODONE HYDROCHLORIDE
     Dosage: 50MG
  17. XIIDRA [Concomitant]
     Active Substance: LIFITEGRAST

REACTIONS (1)
  - Asthma [Unknown]
